FAERS Safety Report 23188374 (Version 6)
Quarter: 2024Q1

REPORT INFORMATION
  Report Type: Spontaneous
  Country: US (occurrence: US)
  Receive Date: 20231115
  Receipt Date: 20240223
  Transmission Date: 20240410
  Serious: No
  Sender: FDA-Public Use
  Company Number: US-PFIZER INC-PV202300181845

PATIENT
  Age: 82 Year
  Sex: Female

DRUGS (1)
  1. IBRANCE [Suspect]
     Active Substance: PALBOCICLIB
     Dosage: 100 MG

REACTIONS (13)
  - Skin infection [Unknown]
  - Erythema [Unknown]
  - Fatigue [Unknown]
  - Eye irritation [Unknown]
  - Memory impairment [Unknown]
  - Decreased appetite [Unknown]
  - Weight decreased [Unknown]
  - Abdominal discomfort [Unknown]
  - Dry skin [Unknown]
  - Skin exfoliation [Unknown]
  - Fingerprint loss [Unknown]
  - Alopecia [Unknown]
  - Sleep disorder [Unknown]

NARRATIVE: CASE EVENT DATE: 20231201
